FAERS Safety Report 4501737-6 (Version None)
Quarter: 2004Q4

REPORT INFORMATION
  Report Type: 
  Country: None (occurrence: None)
  Receive Date: 20041109
  Receipt Date: 20041026
  Transmission Date: 20050328
  Serious: No
  Sender: FDA-Public Use
  Company Number: BR-2004-034150

PATIENT
  Sex: Female

DRUGS (2)
  1. YASMIN [Suspect]
     Indication: ORAL CONTRACEPTION
     Dosage: 1 TAB(S), 21D/28D, ORAL
     Route: 048
     Dates: start: 20040401, end: 20040101
  2. OMEPRAZOLE [Concomitant]

REACTIONS (4)
  - DRUG EXPOSURE DURING PREGNANCY [None]
  - ECTOPIC PREGNANCY [None]
  - ECTOPIC PREGNANCY TERMINATION [None]
  - PREGNANCY ON ORAL CONTRACEPTIVE [None]
